FAERS Safety Report 6903648-5 (Version None)
Quarter: 2010Q3

REPORT INFORMATION
  Report Type: 
  Country: None (occurrence: None)
  Receive Date: 20100803
  Receipt Date: 20081107
  Transmission Date: 20110219
  Serious: No
  Sender: FDA-Public Use
  Company Number: US-PFIZER INC-2008093671

PATIENT
  Sex: Female
  Weight: 84.1 kg

DRUGS (10)
  1. LYRICA [Suspect]
     Indication: FIBROMYALGIA
     Route: 048
     Dates: start: 20071201
  2. AMARYL [Concomitant]
  3. GLUCOPHAGE [Concomitant]
  4. ATARAX [Concomitant]
  5. NEXIUM [Concomitant]
  6. REMERON [Concomitant]
  7. ADDERALL 10 [Concomitant]
  8. XANAX [Concomitant]
  9. ACCUTANE [Concomitant]
  10. VITAMIN B-12 [Concomitant]

REACTIONS (8)
  - ABDOMINAL DISTENSION [None]
  - ABDOMINAL PAIN UPPER [None]
  - BLOOD GLUCOSE INCREASED [None]
  - DISTURBANCE IN ATTENTION [None]
  - DIZZINESS [None]
  - DRUG INEFFECTIVE [None]
  - VISION BLURRED [None]
  - WEIGHT INCREASED [None]
